FAERS Safety Report 23946525 (Version 9)
Quarter: 2024Q4

REPORT INFORMATION
  Report Type: Report from Study
  Country: CN (occurrence: CN)
  Receive Date: 20240606
  Receipt Date: 20241128
  Transmission Date: 20250115
  Serious: Yes (Death, Life-Threatening, Hospitalization, Other)
  Sender: PFIZER
  Company Number: CN-TAKEDA-2024TUS018693

PATIENT
  Age: 80 Year
  Sex: Female
  Weight: 45 kg

DRUGS (23)
  1. BRENTUXIMAB VEDOTIN [Suspect]
     Active Substance: BRENTUXIMAB VEDOTIN
     Indication: Angioimmunoblastic T-cell lymphoma
     Dosage: 80 MG, EVERY 3 WEEKS
     Route: 041
     Dates: start: 20240220
  2. DOXORUBICIN HYDROCHLORIDE [Suspect]
     Active Substance: DOXORUBICIN HYDROCHLORIDE
     Indication: Angioimmunoblastic T-cell lymphoma
     Dosage: UNK
     Route: 065
     Dates: start: 20240220
  3. PREDNISOLONE [Suspect]
     Active Substance: PREDNISOLONE
     Indication: Chemotherapy
     Dosage: 50 MILLIGRAM, QD
     Route: 042
     Dates: start: 20240220, end: 20240225
  4. PREDNISOLONE [Suspect]
     Active Substance: PREDNISOLONE
     Indication: Angioimmunoblastic T-cell lymphoma
  5. CYCLOPHOSPHAMIDE [Suspect]
     Active Substance: CYCLOPHOSPHAMIDE
     Indication: Angioimmunoblastic T-cell lymphoma
     Dosage: UNK
     Route: 065
     Dates: start: 20240220
  6. CYCLOPHOSPHAMIDE [Suspect]
     Active Substance: CYCLOPHOSPHAMIDE
     Dosage: 0.3 GRAM
     Route: 042
     Dates: start: 20240221, end: 20240221
  7. AZACITIDINE [Suspect]
     Active Substance: AZACITIDINE
     Indication: Angioimmunoblastic T-cell lymphoma
     Dosage: 100 MG, D1-D7
     Route: 065
     Dates: start: 20240316
  8. TUCIDINOSTAT [Suspect]
     Active Substance: TUCIDINOSTAT
     Indication: Angioimmunoblastic T-cell lymphoma
     Dosage: 5 MILLIGRAM, QD
     Route: 065
     Dates: start: 20240316
  9. DOXORUBICIN HYDROCHLORIDE [Concomitant]
     Active Substance: DOXORUBICIN HYDROCHLORIDE
     Indication: Angioimmunoblastic T-cell lymphoma
     Dosage: 20 MG
     Route: 042
     Dates: start: 20240221, end: 20240221
  10. RIVAROXABAN [Concomitant]
     Active Substance: RIVAROXABAN
     Indication: Deep vein thrombosis
     Dosage: 10 MG, 1X/DAY
     Route: 048
     Dates: start: 20240218, end: 20240220
  11. NEMONOXACIN MALATE AND SODIUM CHLORIDE [Concomitant]
     Indication: Infection prophylaxis
     Dosage: 0.5 G, 1X/DAY
     Route: 042
     Dates: start: 20240218, end: 20240227
  12. FERRIC POLYSACCHARIDE COMPLEX [Concomitant]
     Active Substance: FERRIC POLYSACCHARIDE COMPLEX
     Indication: Mineral supplementation
     Dosage: 300 MG, 1X/DAY
     Route: 048
     Dates: start: 20240219, end: 20240221
  13. ESOMEPRAZOLE SODIUM [Concomitant]
     Active Substance: ESOMEPRAZOLE SODIUM
     Indication: Prophylaxis
     Dosage: 40 MG, 2X/DAY
     Route: 042
     Dates: start: 20240220, end: 20240302
  14. SODIUM BICARBONATE [Concomitant]
     Active Substance: SODIUM BICARBONATE
     Indication: Prophylaxis
     Dosage: 100 ML, 1X/DAY
     Route: 042
     Dates: start: 20240220, end: 20240222
  15. METHYLCOBALAMIN [Concomitant]
     Active Substance: METHYLCOBALAMIN
     Indication: Vitamin supplementation
     Dosage: 0.5 MG, 1X/DAY
     Route: 042
     Dates: start: 20240220, end: 20240308
  16. DALTEPARIN [Concomitant]
     Active Substance: DALTEPARIN
     Indication: Prophylaxis
     Dosage: 5000 IU, 1X/DAY
     Route: 058
     Dates: start: 20240220, end: 20240223
  17. DOXOFYLLINE [Concomitant]
     Active Substance: DOXOFYLLINE
     Indication: Asthma prophylaxis
     Dosage: 0.2 G, 1X/DAY
     Route: 042
     Dates: start: 20240220, end: 20240222
  18. TROPISETRON HYDROCHLORIDE [Concomitant]
     Active Substance: TROPISETRON HYDROCHLORIDE
     Indication: Prophylaxis of nausea and vomiting
     Dosage: 5 ML, 1X/DAY
     Route: 042
     Dates: start: 20240221, end: 20240222
  19. REDUCED GLUTATHIONE [Concomitant]
     Indication: Prophylaxis
     Dosage: 2.4 G, 1X/DAY
     Route: 042
     Dates: start: 20240221, end: 20240308
  20. FUROSEMIDE [Concomitant]
     Active Substance: FUROSEMIDE
     Indication: Polyuria
     Dosage: 10 MG
     Route: 042
     Dates: start: 20240220, end: 20240220
  21. FUROSEMIDE [Concomitant]
     Active Substance: FUROSEMIDE
     Dosage: 20 MG, 1X/DAY
     Route: 042
     Dates: start: 20240221, end: 20240227
  22. POTASSIUM CHLORIDE [Concomitant]
     Active Substance: POTASSIUM CHLORIDE
     Indication: Mineral supplementation
     Dosage: 1 G, 3X/DAY
     Route: 048
     Dates: start: 20240221, end: 20240222
  23. DEXRAZOXANE [Concomitant]
     Active Substance: DEXRAZOXANE
     Indication: Cardiac failure chronic
     Dosage: 250 MG
     Route: 042
     Dates: start: 20240221, end: 20240221

REACTIONS (14)
  - Pneumonia [Fatal]
  - Respiratory failure [Recovered/Resolved]
  - Hypokalaemia [Not Recovered/Not Resolved]
  - White blood cell count decreased [Not Recovered/Not Resolved]
  - Blood creatinine increased [Recovered/Resolved]
  - Blood pressure decreased [Not Recovered/Not Resolved]
  - Acid base balance abnormal [Not Recovered/Not Resolved]
  - Hepatic function abnormal [Recovered/Resolved]
  - Platelet count decreased [Recovered/Resolved]
  - Anaemia [Not Recovered/Not Resolved]
  - Upper respiratory tract infection [Recovered/Resolved]
  - Haemorrhoids [Not Recovered/Not Resolved]
  - Blood fibrinogen decreased [Recovered/Resolved]
  - Off label use [Recovered/Resolved]

NARRATIVE: CASE EVENT DATE: 20240220
